FAERS Safety Report 20190636 (Version 1)
Quarter: 2021Q4

REPORT INFORMATION
  Report Type: Spontaneous
  Country: US (occurrence: None)
  Receive Date: 20211216
  Receipt Date: 20211216
  Transmission Date: 20220304
  Serious: No
  Sender: FDA-Public Use
  Company Number: US-MDD US Operations-SUP202107-001458

PATIENT
  Sex: Female

DRUGS (4)
  1. TROKENDI XR [Suspect]
     Active Substance: TOPIRAMATE
     Indication: Product used for unknown indication
     Dosage: 100 MG
  2. GABAPENTIN [Concomitant]
     Active Substance: GABAPENTIN
     Indication: Anxiety
  3. PROPANOL (PROPRANOLOL HYDROCHLORIDE) [Concomitant]
     Active Substance: PROPRANOLOL HYDROCHLORIDE
     Indication: Anxiety
     Dosage: NOT PROVIDED
  4. OMEPRAZOLE [Concomitant]
     Active Substance: OMEPRAZOLE
     Indication: Gastric disorder
     Dosage: NOT PROVIDED

REACTIONS (4)
  - Eating disorder [Unknown]
  - Nausea [Unknown]
  - Weight decreased [Unknown]
  - Taste disorder [Unknown]
